FAERS Safety Report 4392534-3 (Version None)
Quarter: 2004Q3

REPORT INFORMATION
  Report Type: 
  Country: None (occurrence: None)
  Receive Date: 20040701
  Receipt Date: 20040624
  Transmission Date: 20050211
  Serious: Yes (Other)
  Sender: FDA-Public Use
  Company Number: GBWYE850424JUN04

PATIENT
  Sex: Male

DRUGS (2)
  1. EFFEXOR XR [Suspect]
     Dosage: 150 MG
  2. INDERAL [Suspect]
     Dosage: 40 MG 2X PER 1 DAY

REACTIONS (3)
  - DRUG INTERACTION [None]
  - FALL [None]
  - HYPOTENSION [None]
